FAERS Safety Report 5745066-1 (Version None)
Quarter: 2008Q2

REPORT INFORMATION
  Report Type: 
  Country: None (occurrence: None)
  Receive Date: 20080521
  Receipt Date: 20080513
  Transmission Date: 20081010
  Serious: Yes (Hospitalization, Other)
  Sender: FDA-Public Use
  Company Number: US-ROCHE-516238

PATIENT
  Sex: Female

DRUGS (5)
  1. PEG-INTERFERON A-2A (RO 25-8310) [Suspect]
     Route: 065
     Dates: start: 20070516, end: 20071219
  2. PEG-INTERFERON A-2A (RO 25-8310) [Suspect]
     Route: 065
     Dates: start: 20080206, end: 20080325
  3. RIBAVIRIN [Suspect]
     Route: 065
     Dates: start: 20070516, end: 20071219
  4. RIBAVIRIN [Suspect]
     Route: 065
     Dates: start: 20080206, end: 20080325
  5. INSULIN [Concomitant]
     Dosage: REPORTED AS ^ATLANTIS INSULTIN^
     Route: 058

REACTIONS (18)
  - ANOREXIA [None]
  - ASTHENIA [None]
  - CONSTIPATION [None]
  - CONTUSION [None]
  - DEPRESSION [None]
  - DIARRHOEA [None]
  - EAR PAIN [None]
  - FALL [None]
  - HAEMATOCHEZIA [None]
  - HOMICIDAL IDEATION [None]
  - LOWER EXTREMITY MASS [None]
  - MIGRAINE [None]
  - NEOPLASM [None]
  - NERVOUSNESS [None]
  - PRURITUS GENERALISED [None]
  - SUICIDE ATTEMPT [None]
  - URINARY INCONTINENCE [None]
  - WEIGHT DECREASED [None]
